FAERS Safety Report 9237007 (Version 2)
Quarter: 2013Q2

REPORT INFORMATION
  Report Type: Spontaneous
  Country: US (occurrence: US)
  Receive Date: 20130417
  Receipt Date: 20130418
  Transmission Date: 20140414
  Serious: No
  Sender: FDA-Public Use
  Company Number: US-PFIZER INC-2013119281

PATIENT
  Age: 56 Year
  Sex: Male
  Weight: 72.56 kg

DRUGS (5)
  1. GABAPENTIN [Suspect]
     Indication: NEUROPATHY PERIPHERAL
     Dosage: 300 MG, 1X/DAY
     Route: 048
     Dates: start: 20130411
  2. GABAPENTIN [Suspect]
     Indication: BACK PAIN
  3. VITAMIN D [Concomitant]
     Dosage: UNK
  4. LORTAB [Concomitant]
     Dosage: UNK
  5. CELEBREX [Concomitant]
     Indication: ARTHRALGIA
     Dosage: 200 MG, AS NEEDED

REACTIONS (10)
  - Gait disturbance [Unknown]
  - Off label use [Unknown]
  - Intentional drug misuse [Unknown]
  - Expired drug administered [Unknown]
  - Chest pain [Unknown]
  - Arthralgia [Unknown]
  - Condition aggravated [Unknown]
  - Dyspnoea [Unknown]
  - Musculoskeletal stiffness [Unknown]
  - Joint stiffness [Unknown]
